FAERS Safety Report 12692913 (Version 1)
Quarter: 2016Q3

REPORT INFORMATION
  Report Type: Spontaneous
  Country: ZA (occurrence: ZA)
  Receive Date: 20160829
  Receipt Date: 20160829
  Transmission Date: 20161109
  Serious: Yes (Other)
  Sender: FDA-Public Use
  Company Number: ZA-CIPLA LTD.-2016ZA10020

PATIENT

DRUGS (4)
  1. RISNIA 0.5MG [Suspect]
     Active Substance: RISPERIDONE
     Indication: DEMENTIA
     Dosage: 0.5 MG, IN THE MORNING
     Route: 065
  2. VITAMIN [Concomitant]
     Active Substance: VITAMINS
     Indication: SUPPLEMENTATION THERAPY
     Dosage: UNK
     Route: 048
  3. PHARMAPRESS [Concomitant]
     Indication: HYPERTENSION
     Dosage: UNK
     Route: 048
  4. RISNIA 0.5MG [Suspect]
     Active Substance: RISPERIDONE
     Dosage: 4 MG, IN THE EVENING STARTED 4 MONTHS AGO
     Route: 065

REACTIONS (6)
  - Communication disorder [Not Recovered/Not Resolved]
  - Fatigue [Not Recovered/Not Resolved]
  - Confusional state [Not Recovered/Not Resolved]
  - Therapeutic response unexpected [None]
  - Condition aggravated [Not Recovered/Not Resolved]
  - Off label use [Not Recovered/Not Resolved]
